FAERS Safety Report 11677656 (Version 1)
Quarter: 2015Q4

REPORT INFORMATION
  Report Type: Spontaneous
  Country: US (occurrence: US)
  Receive Date: 20151027
  Receipt Date: 20151027
  Transmission Date: 20160304
  Serious: No
  Sender: FDA-Public Use
  Company Number: US-ELI_LILLY_AND_COMPANY-US201007005830

PATIENT
  Age: 69 Year
  Sex: Female

DRUGS (3)
  1. FORTEO [Suspect]
     Active Substance: TERIPARATIDE
     Dosage: 20 UG, DAILY (1/D)
     Route: 065
  2. ALCOHOL. [Concomitant]
     Active Substance: ALCOHOL
  3. FORTEO [Suspect]
     Active Substance: TERIPARATIDE
     Dosage: 20 UG, DAILY (1/D)
     Route: 065
     Dates: start: 201007

REACTIONS (14)
  - Eye disorder [Unknown]
  - Eye irritation [Unknown]
  - Hypersomnia [Unknown]
  - Asthenia [Unknown]
  - Dizziness [Unknown]
  - Feeling abnormal [Unknown]
  - Respiratory disorder [Unknown]
  - Injection site pain [Unknown]
  - Depression [Unknown]
  - Eye infection [Unknown]
  - Burning sensation [Unknown]
  - Eczema [Unknown]
  - Rash [Unknown]
  - Eye inflammation [Unknown]
